FAERS Safety Report 21239684 (Version 8)
Quarter: 2023Q2

REPORT INFORMATION
  Report Type: Report from Study
  Country: ES (occurrence: ES)
  Receive Date: 20220822
  Receipt Date: 20230421
  Transmission Date: 20230721
  Serious: Yes (Death, Hospitalization, Other)
  Sender: FDA-Public Use
  Company Number: ES-BRISTOL-MYERS SQUIBB COMPANY-2022-092970

PATIENT
  Age: 80 Year
  Sex: Female
  Weight: 60 kg

DRUGS (14)
  1. ATORVASTATIN [Concomitant]
     Active Substance: ATORVASTATIN
     Indication: Product used for unknown indication
     Route: 048
     Dates: end: 20220807
  2. ASPIRIN [Concomitant]
     Active Substance: ASPIRIN
     Indication: Product used for unknown indication
     Route: 048
     Dates: end: 20220807
  3. HYDROCHLOROTHIAZIDE [Concomitant]
     Active Substance: HYDROCHLOROTHIAZIDE
     Indication: Product used for unknown indication
     Route: 048
     Dates: end: 20220807
  4. CINITAPRIDE [Concomitant]
     Active Substance: CINITAPRIDE
     Indication: Product used for unknown indication
     Dates: end: 20220807
  5. OMEPRAZOLE [Concomitant]
     Active Substance: OMEPRAZOLE
     Indication: Product used for unknown indication
     Route: 048
     Dates: end: 20220807
  6. CANDESARTAN [Concomitant]
     Active Substance: CANDESARTAN
     Indication: Product used for unknown indication
     Dates: end: 20220807
  7. CLORAZEPATE DIPOTASSIUM [Concomitant]
     Active Substance: CLORAZEPATE DIPOTASSIUM
     Indication: Product used for unknown indication
     Dates: end: 20220807
  8. SOLIFENACIN [Concomitant]
     Active Substance: SOLIFENACIN
     Indication: Product used for unknown indication
     Dates: end: 20220807
  9. ETORICOXIB [Concomitant]
     Active Substance: ETORICOXIB
     Indication: Product used for unknown indication
     Dates: end: 20220807
  10. VACUNA PFIZER-BIONTECH COVID-19 [Concomitant]
     Indication: Prophylaxis
     Dosage: 1ST DOSE
     Dates: start: 20210427
  11. VACUNA PFIZER-BIONTECH COVID-19 [Concomitant]
     Dosage: 2ND DOSE
     Dates: start: 20210518
  12. VACUNA PFIZER-BIONTECH COVID-19 [Concomitant]
     Dosage: 3RD DOSE
     Dates: start: 20211127
  13. CIPROFLOXACIN [Concomitant]
     Active Substance: CIPROFLOXACIN
     Indication: Product used for unknown indication
     Dosage: UNK
     Dates: start: 20220527, end: 20220801
  14. CLINDAMYCIN [Concomitant]
     Active Substance: CLINDAMYCIN
     Indication: Product used for unknown indication
     Dates: start: 20220527, end: 20220801

REACTIONS (3)
  - Myocarditis [Fatal]
  - Hepatitis [Not Recovered/Not Resolved]
  - Myopathy [Not Recovered/Not Resolved]

NARRATIVE: CASE EVENT DATE: 20220808
